FAERS Safety Report 6439428-7 (Version None)
Quarter: 2009Q4

REPORT INFORMATION
  Report Type: 
  Country: None (occurrence: None)
  Receive Date: 20091113
  Receipt Date: 20091110
  Transmission Date: 20100525
  Serious: Yes (Death, Hospitalization, Other)
  Sender: FDA-Public Use
  Company Number: JP-BAYER-200812602BYL

PATIENT
  Age: 67 Year
  Sex: Male
  Weight: 68 kg

DRUGS (12)
  1. NEXAVAR [Suspect]
     Indication: RENAL CELL CARCINOMA
     Dosage: UNIT DOSE: 200 MG
     Route: 048
     Dates: start: 20080717, end: 20080805
  2. NEXAVAR [Suspect]
     Dosage: UNIT DOSE: 200 MG
     Route: 048
     Dates: start: 20080812, end: 20080921
  3. NEXAVAR [Suspect]
     Dosage: UNIT DOSE: 200 MG
     Route: 048
     Dates: start: 20080922, end: 20081014
  4. NEXAVAR [Suspect]
     Dosage: UNIT DOSE: 200 MG
     Route: 048
     Dates: start: 20081117, end: 20090129
  5. LASIX [Concomitant]
     Route: 048
     Dates: start: 20090126, end: 20090219
  6. NOVAMIN [Concomitant]
     Indication: PROPHYLAXIS
     Route: 048
     Dates: start: 20090126, end: 20090219
  7. LOXOPROFEN [Concomitant]
     Route: 048
     Dates: start: 20090126, end: 20090219
  8. PURSENNID [Concomitant]
     Indication: PROPHYLAXIS
     Route: 048
     Dates: start: 20090126, end: 20090219
  9. OXYCONTIN [Concomitant]
     Route: 048
     Dates: start: 20090126, end: 20090218
  10. DUROTEP [Concomitant]
     Dosage: UNIT DOSE: 2.1 MG
     Route: 061
     Dates: start: 20090227, end: 20090228
  11. DECADRON [Concomitant]
     Route: 048
     Dates: start: 20090224, end: 20090301
  12. PERIACTIN [Concomitant]
     Route: 048
     Dates: start: 20090126, end: 20090127

REACTIONS (10)
  - BACK PAIN [None]
  - DECREASED APPETITE [None]
  - DYSPNOEA [None]
  - HEAT RASH [None]
  - HEPATIC FUNCTION ABNORMAL [None]
  - HYPERCALCAEMIA [None]
  - MALAISE [None]
  - METASTASES TO LUNG [None]
  - PALMAR-PLANTAR ERYTHRODYSAESTHESIA SYNDROME [None]
  - PLEURAL EFFUSION [None]
